FAERS Safety Report 9048821 (Version 1)
Quarter: 2013Q1

REPORT INFORMATION
  Report Type: Spontaneous
  Country: US (occurrence: None)
  Receive Date: 20130116
  Receipt Date: 20130116
  Transmission Date: 20140127
  Serious: Yes (Death)
  Sender: FDA-Public Use
  Company Number: ANI_2013_1099434

PATIENT
  Age: 31 Year
  Sex: Male

DRUGS (4)
  1. METOCLOPRAMIDE [Suspect]
  2. VERAPAMIL [Suspect]
  3. METOPROLOL [Suspect]
  4. HYDROCHLOROTHIAZIDE\TRIAMTERENE [Suspect]

REACTIONS (2)
  - Poisoning [None]
  - Completed suicide [None]
